FAERS Safety Report 15147525 (Version 2)
Quarter: 2018Q4

REPORT INFORMATION
  Report Type: Spontaneous
  Country: GR (occurrence: GR)
  Receive Date: 20180716
  Receipt Date: 20181113
  Transmission Date: 20190204
  Serious: Yes (Hospitalization, Other)
  Sender: FDA-Public Use
  Company Number: GR-ACCORD-069442

PATIENT
  Age: 23 Year
  Sex: Female

DRUGS (6)
  1. ISONIAZID. [Concomitant]
     Active Substance: ISONIAZID
     Dosage: UNK
  2. HYDROXOCOBALAMIN/PYRIDOXINE HYDROCHLORIDE/THIAMINE HYDROCHLORIDE [Concomitant]
     Dosage: UNK
  3. METHOTREXATE. [Suspect]
     Active Substance: METHOTREXATE
     Indication: RHEUMATOID ARTHRITIS
     Route: 048
  4. INFLUENZA VACCINE [Concomitant]
     Active Substance: INFLUENZA VIRUS VACCINE
     Dates: start: 201710
  5. ENBREL [Suspect]
     Active Substance: ETANERCEPT
     Indication: RHEUMATOID ARTHRITIS
     Dates: start: 201706, end: 201709
  6. FOLIC ACID. [Concomitant]
     Active Substance: FOLIC ACID
     Dosage: UNK

REACTIONS (2)
  - Guillain-Barre syndrome [Recovering/Resolving]
  - Paresis [Recovering/Resolving]

NARRATIVE: CASE EVENT DATE: 201711
